FAERS Safety Report 19521378 (Version 6)
Quarter: 2022Q2

REPORT INFORMATION
  Report Type: Spontaneous
  Country: US (occurrence: US)
  Receive Date: 20210712
  Receipt Date: 20220614
  Transmission Date: 20220720
  Serious: No
  Sender: FDA-Public Use
  Company Number: US-BIOGEN-2021BI01027838

PATIENT
  Age: 54 Year
  Sex: Male

DRUGS (1)
  1. TYSABRI [Suspect]
     Active Substance: NATALIZUMAB
     Indication: Multiple sclerosis
     Route: 065
     Dates: start: 20120510, end: 20220418

REACTIONS (9)
  - Inappropriate schedule of product administration [Unknown]
  - Dysgraphia [Not Recovered/Not Resolved]
  - Sciatica [Not Recovered/Not Resolved]
  - Frustration tolerance decreased [Not Recovered/Not Resolved]
  - Stress [Not Recovered/Not Resolved]
  - Memory impairment [Unknown]
  - Sluggishness [Unknown]
  - Bradyphrenia [Unknown]
  - Fatigue [Unknown]

NARRATIVE: CASE EVENT DATE: 20190301
